FAERS Safety Report 21652933 (Version 1)
Quarter: 2022Q4

REPORT INFORMATION
  Report Type: Spontaneous
  Country: PT (occurrence: PT)
  Receive Date: 20221128
  Receipt Date: 20221128
  Transmission Date: 20230113
  Serious: Yes (Hospitalization, Other)
  Sender: FDA-Public Use
  Company Number: PT-FreseniusKabi-FK202216413

PATIENT
  Age: 27 Year
  Sex: Female

DRUGS (7)
  1. LIDOCAINE [Suspect]
     Active Substance: LIDOCAINE
     Indication: Analgesic therapy
     Dosage: BOLUS OF15ML LIDOCAINE 2 PERCENT
  2. ROPIVACAINE [Suspect]
     Active Substance: ROPIVACAINE
     Indication: Analgesic therapy
     Dosage: 2 ML OF 0.15 PERCENT
     Route: 037
  3. ROPIVACAINE [Suspect]
     Active Substance: ROPIVACAINE
     Dosage: BOLUS 8 ML OF 0.2 PERCENT  DURING THE NIGHT, AT 1:00 AM AND AT 5:00 AM
  4. ROPIVACAINE [Suspect]
     Active Substance: ROPIVACAINE
     Dosage: INTERMITTENT EPIDURAL BOLUS OF 10 ML OR 0.13%
     Route: 008
  5. SUFENTANIL [Suspect]
     Active Substance: SUFENTANIL
     Indication: Analgesic therapy
     Dosage: 2.5?G
  6. SUFENTANIL [Suspect]
     Active Substance: SUFENTANIL
     Dosage: 5?G
  7. PHENYLEPHRINE [Concomitant]
     Active Substance: PHENYLEPHRINE HYDROCHLORIDE
     Indication: Hypotension

REACTIONS (2)
  - Horner^s syndrome [Recovered/Resolved]
  - Exposure during pregnancy [Unknown]
